FAERS Safety Report 5093028-2 (Version None)
Quarter: 2006Q3

REPORT INFORMATION
  Report Type: 
  Country: None (occurrence: None)
  Receive Date: 20060830
  Receipt Date: 20060823
  Transmission Date: 20061208
  Serious: Yes (Other)
  Sender: FDA-Public Use
  Company Number: PHBS2006BR12981

PATIENT
  Age: 36 Year
  Sex: Male
  Weight: 78.9 kg

DRUGS (1)
  1. CATAFLAM [Suspect]
     Indication: PHARYNGITIS
     Route: 048
     Dates: start: 20060823

REACTIONS (1)
  - HAEMOPTYSIS [None]
